FAERS Safety Report 4490569-3 (Version None)
Quarter: 2004Q4

REPORT INFORMATION
  Report Type: 
  Country: None (occurrence: None)
  Receive Date: 20041102
  Receipt Date: 20041018
  Transmission Date: 20050328
  Serious: Yes (Life-Threatening)
  Sender: FDA-Public Use
  Company Number: JP-MERCK-0410USA03490

PATIENT
  Age: 84 Year
  Sex: Female

DRUGS (11)
  1. SINGULAIR [Suspect]
     Indication: ASTHMA
     Route: 048
     Dates: start: 20041008, end: 20041012
  2. NITRODERM [Concomitant]
     Indication: ANGINA PECTORIS
     Route: 061
  3. DECADRON [Concomitant]
     Route: 042
  4. VENTOLIN [Concomitant]
     Route: 055
  5. AMINOPHYLLINE [Concomitant]
     Route: 041
  6. PRIMPERAN INJ [Concomitant]
     Route: 048
  7. PRIMPERAN INJ [Concomitant]
     Route: 042
  8. LASIX [Concomitant]
     Route: 042
  9. LASIX [Concomitant]
     Route: 042
  10. LASIX [Concomitant]
     Route: 048
  11. LASIX [Concomitant]
     Route: 048

REACTIONS (4)
  - ALANINE AMINOTRANSFERASE INCREASED [None]
  - ASPARTATE AMINOTRANSFERASE INCREASED [None]
  - BLOOD ALKALINE PHOSPHATASE INCREASED [None]
  - HEPATIC FUNCTION ABNORMAL [None]
